FAERS Safety Report 16910667 (Version 1)
Quarter: 2019Q4

REPORT INFORMATION
  Report Type: Report from Study
  Country: US (occurrence: US)
  Receive Date: 20191012
  Receipt Date: 20191012
  Transmission Date: 20200122
  Serious: Yes (Hospitalization)
  Sender: FDA-Public Use
  Company Number: US-ROCHE-2430740

PATIENT
  Sex: Male

DRUGS (1)
  1. OCREVUS [Suspect]
     Active Substance: OCRELIZUMAB
     Indication: RELAPSING MULTIPLE SCLEROSIS
     Dosage: 27/AUG/2018, 10/SEP/2018, 21/MAR/2019, 10/SEP/2019
     Route: 042
     Dates: start: 20180820

REACTIONS (1)
  - Urinary tract infection [Not Recovered/Not Resolved]
